FAERS Safety Report 15644831 (Version 1)
Quarter: 2018Q4

REPORT INFORMATION
  Report Type: Report from Study
  Country: US (occurrence: US)
  Receive Date: 20181121
  Receipt Date: 20181121
  Transmission Date: 20190205
  Serious: Yes (Other)
  Sender: FDA-Public Use
  Company Number: US-ROCHE-1883429

PATIENT

DRUGS (2)
  1. CYCLOPHOSPHAMIDE. [Suspect]
     Active Substance: CYCLOPHOSPHAMIDE
     Indication: MALIGNANT GLIOMA
     Route: 065
  2. BEVACIZUMAB. [Suspect]
     Active Substance: BEVACIZUMAB
     Indication: MALIGNANT GLIOMA
     Route: 042

REACTIONS (12)
  - Haemorrhage intracranial [Unknown]
  - Delirium [Unknown]
  - Embolism [Unknown]
  - Muscular weakness [Unknown]
  - Myalgia [Unknown]
  - Fall [Unknown]
  - Urinary incontinence [Unknown]
  - Gait disturbance [Unknown]
  - Anxiety [Unknown]
  - Headache [Unknown]
  - Back pain [Unknown]
  - Hydrocephalus [Unknown]
